FAERS Safety Report 8198806-9 (Version None)
Quarter: 2012Q1

REPORT INFORMATION
  Report Type: 
  Country: None (occurrence: None)
  Receive Date: 20120309
  Receipt Date: 20120220
  Transmission Date: 20120608
  Serious: No
  Sender: FDA-Public Use
  Company Number: US-AMGEN-USASP2012008839

PATIENT
  Age: 56 Year
  Sex: Female
  Weight: 61.224 kg

DRUGS (19)
  1. GARLIC [Concomitant]
     Dosage: UNK
  2. ASPIRIN [Concomitant]
     Dosage: UNK
  3. FISH OIL [Concomitant]
     Dosage: UNK
  4. WOMEN'S MULTI [Concomitant]
     Dosage: UNK
  5. POTASSIUM [Concomitant]
     Dosage: UNK
  6. MAGNESIUM [Concomitant]
     Dosage: UNK
  7. BALANCED B-50 [Concomitant]
     Dosage: UNK
  8. VITAMIN D [Concomitant]
     Dosage: UNK
  9. CALCIUM CITRATE [Concomitant]
     Dosage: UNK
  10. ECHINACEA [Concomitant]
     Dosage: UNK
  11. ZOLPIDEM TARTRATE [Concomitant]
     Dosage: UNK
  12. ASCORBIC ACID [Concomitant]
     Dosage: UNK
  13. PROLIA [Suspect]
     Indication: OSTEOPOROSIS POSTMENOPAUSAL
     Dosage: 60 MG, Q6MO
     Route: 058
     Dates: start: 20120124
  14. VENLAFAXINE [Concomitant]
     Dosage: UNK
  15. ZINC SULFATE [Concomitant]
     Dosage: UNK
  16. FLUSH FREE NIACIN [Concomitant]
     Dosage: UNK
  17. VITAMIN E [Concomitant]
     Dosage: UNK
  18. CLONAZEPAM [Concomitant]
     Dosage: UNK
  19. XANAX [Concomitant]
     Dosage: UNK

REACTIONS (1)
  - RASH [None]
